FAERS Safety Report 23948075 (Version 2)
Quarter: 2024Q3

REPORT INFORMATION
  Report Type: Spontaneous
  Country: US (occurrence: US)
  Receive Date: 20240607
  Receipt Date: 20240701
  Transmission Date: 20241017
  Serious: No
  Sender: ABBVIE
  Company Number: US-ABBVIE-5787099

PATIENT
  Age: 61 Year
  Sex: Female
  Weight: 81.646 kg

DRUGS (1)
  1. LATISSE [Suspect]
     Active Substance: BIMATOPROST
     Indication: Growth of eyelashes
     Dosage: FORM STRENGTH: 0.3 MILLIGRAM
     Route: 061
     Dates: start: 202405, end: 202405

REACTIONS (4)
  - Skin hyperpigmentation [Recovered/Resolved]
  - Periorbital swelling [Recovered/Resolved]
  - Eye irritation [Recovered/Resolved]
  - Erythema [Recovered/Resolved]

NARRATIVE: CASE EVENT DATE: 20240501
